FAERS Safety Report 8238098 (Version 4)
Quarter: 2013Q2

REPORT INFORMATION
  Report Type: Report from Study
  Country: US (occurrence: US)
  Receive Date: 20111109
  Receipt Date: 20130506
  Transmission Date: 20140414
  Serious: Yes (Hospitalization, Other)
  Sender: FDA-Public Use
  Company Number: PHHO2011US17983

PATIENT
  Age: 65 Year
  Sex: Female

DRUGS (17)
  1. VOLTAREN [Suspect]
     Indication: TYPE 2 DIABETES MELLITUS
  2. SAXAGLIPTIN [Suspect]
     Indication: TYPE 2 DIABETES MELLITUS
     Dosage: UNK
     Dates: start: 20101019
  3. NOVOLOG [Suspect]
     Indication: TYPE 2 DIABETES MELLITUS
     Dosage: 30 IU, UNK
     Dates: start: 20090518, end: 20110201
  4. NOVOLOG [Suspect]
     Dosage: 28 IU, UNK
     Dates: start: 20110205
  5. LANTUS [Suspect]
     Indication: TYPE 2 DIABETES MELLITUS
     Dosage: 160 IU, UNK
     Dates: start: 20090601
  6. LANTUS [Suspect]
     Dosage: 180 IU, UNK
     Dates: start: 20110721
  7. ACTOS [Suspect]
     Indication: TYPE 2 DIABETES MELLITUS
     Dosage: UNK
     Dates: start: 20101215, end: 20110211
  8. INSULIN LISPRO [Suspect]
     Indication: TYPE 2 DIABETES MELLITUS
     Dosage: 1 DOSAGE FORM
     Dates: start: 20110202, end: 20110217
  9. RANEXA [Suspect]
     Dosage: 1000 MG, UNK
     Dates: start: 20110202, end: 20110217
  10. ASPIRIN [Concomitant]
  11. NITRATES [Concomitant]
  12. NITROGLYCERIN [Concomitant]
     Dosage: UNK
     Dates: start: 20110202, end: 20110215
  13. HYDRALAZINE [Concomitant]
     Dosage: UNK
     Dates: start: 20110202, end: 20110202
  14. NORMAL SALINE [Concomitant]
     Dosage: UNK
     Dates: start: 20110202, end: 20110204
  15. MORPHINE [Concomitant]
     Dosage: UNK
     Dates: start: 20110202, end: 20110203
  16. HUMALOG [Concomitant]
     Dosage: UNK
     Dates: start: 20110215, end: 20110217
  17. LASIX [Concomitant]
     Dosage: UNK
     Dates: start: 20110202, end: 20110204

REACTIONS (15)
  - Cardiomegaly [Unknown]
  - Pulmonary oedema [Unknown]
  - Suicidal ideation [Recovered/Resolved]
  - Irritable bowel syndrome [Unknown]
  - Hyperhidrosis [Recovered/Resolved]
  - Renal failure acute [Recovered/Resolved with Sequelae]
  - Non-cardiac chest pain [Recovered/Resolved]
  - Asthma [Recovered/Resolved]
  - Reflux gastritis [Recovered/Resolved]
  - Hyperglycaemia [Recovered/Resolved]
  - Nausea [Unknown]
  - Vomiting [Recovered/Resolved]
  - Tremor [Recovered/Resolved]
  - Abdominal pain [Recovered/Resolved]
  - Anxiety [Unknown]
